FAERS Safety Report 10510096 (Version 2)
Quarter: 2014Q4

REPORT INFORMATION
  Report Type: Report from Study
  Country: US (occurrence: US)
  Receive Date: 20141010
  Receipt Date: 20141021
  Transmission Date: 20150528
  Serious: Yes (Death)
  Sender: FDA-Public Use
  Company Number: US-AMGEN-USASL2014077158

PATIENT
  Age: 69 Year
  Sex: Male

DRUGS (1)
  1. SENSIPAR [Suspect]
     Active Substance: CINACALCET HYDROCHLORIDE
     Indication: HYPERPARATHYROIDISM
     Dosage: 30 MG, QD
     Route: 065

REACTIONS (2)
  - Decubitus ulcer [Fatal]
  - Sepsis [Fatal]
